FAERS Safety Report 6909075-9 (Version None)
Quarter: 2010Q3

REPORT INFORMATION
  Report Type: 
  Country: None (occurrence: None)
  Receive Date: 20100805
  Receipt Date: 20100728
  Transmission Date: 20110219
  Serious: Yes (Other)
  Sender: FDA-Public Use
  Company Number: US-RB-009912-10

PATIENT
  Sex: Female

DRUGS (10)
  1. SUBOXONE [Suspect]
     Indication: DRUG DEPENDENCE
     Route: 060
     Dates: start: 20100514
  2. XANAX [Suspect]
     Indication: HEAD INJURY
     Dosage: DOSING SCHEDULE UNKNOWN.
     Route: 048
     Dates: end: 20100509
  3. XANAX [Suspect]
     Indication: ANXIETY
     Dosage: DOSING SCHEDULE UNKNOWN.
     Route: 048
     Dates: end: 20100509
  4. RESTORIL [Suspect]
     Indication: INSOMNIA
     Dosage: DOSING DETAILS UNKNOWN
     Route: 065
     Dates: end: 20100509
  5. KLONOPIN [Suspect]
     Indication: HEAD INJURY
     Dosage: DOSING INFORMATION UNKNOWN.
     Route: 048
     Dates: end: 20100509
  6. KLONOPIN [Suspect]
     Indication: ANXIETY
     Dosage: DOSING INFORMATION UNKNOWN.
     Route: 048
     Dates: end: 20100509
  7. SEROQUEL [Suspect]
     Indication: DEPRESSION
     Dosage: DOSING INFORMATION UNKNOWN.
     Route: 048
     Dates: start: 20100501, end: 20100501
  8. PHENOBARBITAL [Suspect]
     Dosage: DOSING INFORMATION UNKNOWN.
     Route: 065
     Dates: start: 20100101, end: 20100701
  9. PHENOBARBITAL [Suspect]
     Indication: CONVULSION
     Dosage: DOSING INFORMATION UNKNOWN.
     Route: 065
     Dates: start: 20100714
  10. AMBIEN [Concomitant]
     Indication: INSOMNIA
     Dosage: DOSING INFORMATION UNKNOWN.
     Route: 048

REACTIONS (9)
  - CONVULSION [None]
  - FLUID RETENTION [None]
  - FUNGAL INFECTION [None]
  - HERPES VIRUS INFECTION [None]
  - HYPERHIDROSIS [None]
  - INSOMNIA [None]
  - NAUSEA [None]
  - PAIN [None]
  - TREMOR [None]
